FAERS Safety Report 13688032 (Version 1)
Quarter: 2017Q2

REPORT INFORMATION
  Report Type: Spontaneous
  Country: US (occurrence: US)
  Receive Date: 20170626
  Receipt Date: 20170626
  Transmission Date: 20170830
  Serious: No
  Sender: FDA-Public Use
  Company Number: US-ACCORD-043325

PATIENT
  Age: 79 Year
  Sex: Female
  Weight: 68.04 kg

DRUGS (5)
  1. CLONAZEPAM ACCORD [Suspect]
     Active Substance: CLONAZEPAM
     Indication: MUSCLE RELAXANT THERAPY
     Dosage: STRENGTH: 0.5 MG (AS NEEDED)?EXACT START DATE UNKNOWN
     Route: 048
     Dates: start: 201607
  2. CELEBREX [Concomitant]
     Active Substance: CELECOXIB
  3. BENICAR [Concomitant]
     Active Substance: OLMESARTAN MEDOXOMIL
  4. AMLODIPINE [Concomitant]
     Active Substance: AMLODIPINE BESYLATE
  5. LEVOTHYROXINE. [Concomitant]
     Active Substance: LEVOTHYROXINE

REACTIONS (3)
  - Off label use [Unknown]
  - Product substitution issue [Unknown]
  - Dizziness [Unknown]
